FAERS Safety Report 10398456 (Version 2)
Quarter: 2014Q3

REPORT INFORMATION
  Report Type: Spontaneous
  Country: US (occurrence: US)
  Receive Date: 20140821
  Receipt Date: 20140821
  Transmission Date: 20150326
  Serious: Yes (Other)
  Sender: FDA-Public Use
  Company Number: US-AMGEN-USASP2013073932

PATIENT
  Age: 28 Year
  Sex: Female
  Weight: 81.63 kg

DRUGS (5)
  1. ATABEX DHA [Concomitant]
     Indication: PRENATAL CARE
     Dosage: UNK UNK, QD
     Dates: start: 20130612, end: 20140220
  2. PLAQUENIL [Concomitant]
     Active Substance: HYDROXYCHLOROQUINE SULFATE
     Indication: RHEUMATOID ARTHRITIS
     Dosage: 200 MG, BID
     Dates: start: 20110401, end: 20140110
  3. NORMODYNE [Concomitant]
     Active Substance: LABETALOL HYDROCHLORIDE
     Indication: HYPERTENSION
     Dosage: 200 MG, BID
     Dates: start: 20130612
  4. ZANTAC [Concomitant]
     Active Substance: RANITIDINE HYDROCHLORIDE
     Dosage: 300 UNK, QD
     Dates: start: 20130612
  5. ENBREL [Suspect]
     Active Substance: ETANERCEPT
     Indication: RHEUMATOID ARTHRITIS
     Dosage: UNK UNK, QWK
     Route: 065
     Dates: start: 20121031, end: 201305

REACTIONS (3)
  - Beta haemolytic streptococcal infection [Unknown]
  - Gestational hypertension [Unknown]
  - Induced labour [Unknown]

NARRATIVE: CASE EVENT DATE: 20140120
